FAERS Safety Report 8417470-4 (Version None)
Quarter: 2012Q2

REPORT INFORMATION
  Report Type: 
  Country: None (occurrence: None)
  Receive Date: 20120606
  Receipt Date: 20120531
  Transmission Date: 20120825
  Serious: Yes (Other)
  Sender: FDA-Public Use
  Company Number: FR-AMGEN-FRASP2012031501

PATIENT
  Age: 94 Year
  Sex: Female

DRUGS (4)
  1. PROLIA [Suspect]
     Indication: OSTEOPOROSIS
     Dosage: UNK
     Dates: start: 20111101, end: 20120518
  2. CALCIUM VITAMIN D [Concomitant]
     Indication: OSTEOPOROSIS
     Dosage: UNK
  3. ASPIRIN [Concomitant]
     Indication: CARDIAC DISORDER
     Dosage: 160 UNK, UNK
  4. LASIX [Concomitant]
     Indication: HEART RATE ABNORMAL
     Dosage: UNK

REACTIONS (1)
  - BLINDNESS [None]
